FAERS Safety Report 14773329 (Version 3)
Quarter: 2018Q3

REPORT INFORMATION
  Report Type: Spontaneous
  Country: US (occurrence: US)
  Receive Date: 20180418
  Receipt Date: 20180911
  Transmission Date: 20181010
  Serious: No
  Sender: FDA-Public Use
  Company Number: US-PFIZER INC-2018065979

PATIENT
  Age: 56 Year
  Sex: Female
  Weight: 119.7 kg

DRUGS (3)
  1. IBRANCE [Suspect]
     Active Substance: PALBOCICLIB
     Indication: BREAST CANCER METASTATIC
     Dosage: 125 MG, CYCLIC (ONCE A DAY FOR 21 DAYS, THEN 7 DAYS OFF BEFORE RESTARTING CYCLE)
     Route: 048
     Dates: start: 2017
  2. LETROZOLE. [Concomitant]
     Active Substance: LETROZOLE
     Indication: BREAST CANCER METASTATIC
     Dosage: 5 MG, ONCE DAILY
     Route: 048
     Dates: start: 2016
  3. CARVEDILOL. [Concomitant]
     Active Substance: CARVEDILOL
     Indication: CARDIAC FAILURE CONGESTIVE
     Dosage: 25 MG, TWICE DAILY

REACTIONS (9)
  - Intentional product misuse [Unknown]
  - Drug dose omission [Unknown]
  - Fatigue [Unknown]
  - Joint vibration [Unknown]
  - Pain [Unknown]
  - Lung disorder [Unknown]
  - Throat tightness [Unknown]
  - Bone disorder [Unknown]
  - Throat irritation [Unknown]
